FAERS Safety Report 15981137 (Version 2)
Quarter: 2019Q1

REPORT INFORMATION
  Report Type: Report from Study
  Country: CO (occurrence: CO)
  Receive Date: 20190219
  Receipt Date: 20190306
  Transmission Date: 20190418
  Serious: Yes (Death, Hospitalization, Other)
  Sender: FDA-Public Use
  Company Number: CO-ASTELLAS-2019US006108

PATIENT
  Age: 66 Year
  Sex: Male
  Weight: 58 kg

DRUGS (1)
  1. ENZALUTAMIDE [Suspect]
     Active Substance: ENZALUTAMIDE
     Indication: HORMONE-REFRACTORY PROSTATE CANCER
     Route: 048
     Dates: start: 20181230, end: 20190224

REACTIONS (12)
  - Disorientation [Not Recovered/Not Resolved]
  - Decreased appetite [Not Recovered/Not Resolved]
  - Asthenia [Not Recovered/Not Resolved]
  - Acute kidney injury [Fatal]
  - Cardiac arrest [Fatal]
  - Haematuria [Not Recovered/Not Resolved]
  - Hypotension [Fatal]
  - Dyspnoea [Fatal]
  - Gastritis [Not Recovered/Not Resolved]
  - Haematemesis [Not Recovered/Not Resolved]
  - Oesophagitis [Not Recovered/Not Resolved]
  - Helicobacter infection [Fatal]

NARRATIVE: CASE EVENT DATE: 201901
